FAERS Safety Report 9524056 (Version 2)
Quarter: 2014Q1

REPORT INFORMATION
  Report Type: Report from Study
  Country: BE (occurrence: BE)
  Receive Date: 20130916
  Receipt Date: 20140221
  Transmission Date: 20141002
  Serious: Yes (Other)
  Sender: FDA-Public Use
  Company Number: BE-ROCHE-1274618

PATIENT
  Age: 89 Year
  Sex: Female

DRUGS (8)
  1. RANIBIZUMAB [Suspect]
     Indication: PRODUCT USED FOR UNKNOWN INDICATION
     Route: 050
     Dates: start: 20100323
  2. RANIBIZUMAB [Suspect]
     Route: 050
     Dates: start: 20130131
  3. EMCORETIC [Concomitant]
     Indication: HYPERTENSION
     Route: 065
     Dates: start: 2001
  4. EMCORETIC [Concomitant]
     Route: 065
     Dates: start: 20130131
  5. COVERSYL [Concomitant]
     Indication: HYPERTENSION
     Route: 065
     Dates: start: 2001
  6. COVERSYL [Concomitant]
     Route: 065
     Dates: start: 20130131
  7. LIPANTIL [Concomitant]
     Indication: HYPERCHOLESTEROLAEMIA
     Route: 065
     Dates: start: 2001
  8. LIPANTIL [Concomitant]
     Route: 065
     Dates: start: 20130131

REACTIONS (1)
  - Panophthalmitis [Recovered/Resolved]
